FAERS Safety Report 4531870-4 (Version None)
Quarter: 2004Q4

REPORT INFORMATION
  Report Type: 
  Country: None (occurrence: None)
  Receive Date: 20041220
  Receipt Date: 20041213
  Transmission Date: 20050328
  Serious: Yes (Hospitalization)
  Sender: FDA-Public Use
  Company Number: US-JNJFOC-20041102576

PATIENT
  Sex: Female

DRUGS (2)
  1. DURAGESIC [Suspect]
  2. DURAGESIC [Suspect]

REACTIONS (34)
  - ASTHENIA [None]
  - BLOOD CHLORIDE DECREASED [None]
  - BONE PAIN [None]
  - BURNING SENSATION [None]
  - CHEST PAIN [None]
  - CONDITION AGGRAVATED [None]
  - CROHN'S DISEASE [None]
  - DIZZINESS [None]
  - DYSKINESIA [None]
  - DYSURIA [None]
  - FEELING COLD [None]
  - HYPERHIDROSIS [None]
  - HYPERTENSION [None]
  - HYPERTENSIVE CRISIS [None]
  - HYPOAESTHESIA [None]
  - HYPONATRAEMIA [None]
  - INTERVERTEBRAL DISC SPACE NARROWING [None]
  - INTESTINAL OBSTRUCTION [None]
  - MYOCLONUS [None]
  - NAUSEA [None]
  - NERVOUSNESS [None]
  - PAIN [None]
  - PAIN EXACERBATED [None]
  - PAIN IN EXTREMITY [None]
  - PARAESTHESIA [None]
  - POLLAKIURIA [None]
  - SMALL INTESTINAL OBSTRUCTION [None]
  - SPINAL DISORDER [None]
  - TINNITUS [None]
  - TRANSIENT ISCHAEMIC ATTACK [None]
  - URINARY RETENTION [None]
  - VISION BLURRED [None]
  - VOMITING [None]
  - WEIGHT DECREASED [None]
